FAERS Safety Report 10495427 (Version 2)
Quarter: 2014Q4

REPORT INFORMATION
  Report Type: Spontaneous
  Country: FR (occurrence: FR)
  Receive Date: 20141003
  Receipt Date: 20141112
  Transmission Date: 20150528
  Serious: Yes (Death, Hospitalization)
  Sender: FDA-Public Use
  Company Number: FR-PFIZER INC-2014267098

PATIENT
  Age: 66 Year
  Sex: Male

DRUGS (19)
  1. VFEND [Suspect]
     Active Substance: VORICONAZOLE
     Indication: CEREBRAL ASPERGILLOSIS
     Dosage: 400 MG, 2X/DAY
     Route: 042
     Dates: start: 20140804
  2. PARACETAMOL [Concomitant]
     Active Substance: ACETAMINOPHEN
  3. PROGRAF [Concomitant]
     Active Substance: TACROLIMUS\TACROLIMUS ANHYDROUS
  4. CELLCEPT [Concomitant]
     Active Substance: MYCOPHENOLATE MOFETIL\MYCOPHENOLATE MOFETIL HYDROCHLORIDE
  5. DETENSIEL [Concomitant]
     Active Substance: BISOPROLOL FUMARATE
  6. VFEND [Suspect]
     Active Substance: VORICONAZOLE
     Indication: CEREBRAL ASPERGILLOSIS
     Dosage: 200 MG, 2X/DAY
     Route: 048
     Dates: start: 20140811
  7. CORTANCYL [Concomitant]
     Active Substance: PREDNISONE
  8. CACIT [Concomitant]
     Active Substance: CALCIUM\VITAMIN D
  9. BICARBONATE [Concomitant]
     Active Substance: BICARBONATE ION
  10. UVEDOSE [Concomitant]
     Active Substance: CHOLECALCIFEROL
  11. TRANXENE T-TAB [Concomitant]
     Active Substance: CLORAZEPATE DIPOTASSIUM
  12. AMBISOME [Suspect]
     Active Substance: AMPHOTERICIN B
     Indication: CEREBRAL ASPERGILLOSIS
     Dosage: 300 MG, 1X/DAY
     Route: 042
     Dates: start: 20140801, end: 20140803
  13. AMLOR [Concomitant]
     Active Substance: AMLODIPINE BESYLATE
  14. INEXIUM /01479302/ [Concomitant]
     Active Substance: ESOMEPRAZOLE MAGNESIUM
  15. MIRCERA [Concomitant]
     Active Substance: PEGZEREPOETIN ALFA
  16. LEVOTHYROX [Concomitant]
     Active Substance: LEVOTHYROXINE
  17. VFEND [Suspect]
     Active Substance: VORICONAZOLE
     Dosage: 350 MG, 2X/DAY
     Route: 042
     Dates: end: 20140811
  18. PHOSPHONEUROS [Concomitant]
     Active Substance: CALCIUM PHOSPHATE, DIBASIC, ANHYDROUS\MAGNESIUM GLYCEROPHOSPHATE\PHOSPHORIC ACID\SODIUM PHOSPHATE, DIBASIC
  19. NOVONORM [Concomitant]
     Active Substance: REPAGLINIDE

REACTIONS (3)
  - Renal impairment [Fatal]
  - Hepatocellular injury [Fatal]
  - Cholestasis [Fatal]

NARRATIVE: CASE EVENT DATE: 201408
